FAERS Safety Report 4849140-3 (Version None)
Quarter: 2005Q4

REPORT INFORMATION
  Report Type: 
  Country: None (occurrence: None)
  Receive Date: 20051209
  Receipt Date: 20041223
  Transmission Date: 20060501
  Serious: Yes (Hospitalization, Disabling, Other)
  Sender: FDA-Public Use
  Company Number: US-MERCK-0412USA02879

PATIENT
  Age: 53 Year
  Sex: Male
  Weight: 76 kg

DRUGS (17)
  1. VIOXX [Suspect]
     Indication: ARTHRITIS
     Route: 048
     Dates: start: 20000302, end: 20010122
  2. VIOXX [Suspect]
     Route: 048
     Dates: start: 20000101, end: 20040901
  3. VIOXX [Suspect]
     Route: 048
     Dates: start: 20000302, end: 20040901
  4. VIOXX [Suspect]
     Route: 048
     Dates: start: 20010125
  5. VIOXX [Suspect]
     Indication: BACK PAIN
     Route: 048
     Dates: start: 20000302, end: 20010122
  6. VIOXX [Suspect]
     Route: 048
     Dates: start: 20000101, end: 20040901
  7. VIOXX [Suspect]
     Route: 048
     Dates: start: 20000302, end: 20040901
  8. VIOXX [Suspect]
     Route: 048
     Dates: start: 20010125
  9. ZYLOPRIM [Concomitant]
     Route: 048
     Dates: end: 20010122
  10. ZYLOPRIM [Concomitant]
     Route: 048
     Dates: start: 20010125
  11. COLCHICINE [Concomitant]
     Indication: GOUT
     Route: 065
  12. SINEMET [Concomitant]
     Route: 048
     Dates: end: 20010122
  13. SINEMET [Concomitant]
     Route: 048
     Dates: start: 20010125
  14. COMTAN [Concomitant]
     Route: 048
  15. LOPRESSOR [Concomitant]
     Route: 048
  16. PRILOSEC [Concomitant]
     Route: 048
     Dates: end: 20010122
  17. PRILOSEC [Concomitant]
     Route: 048
     Dates: start: 20010125

REACTIONS (9)
  - ABSCESS LIMB [None]
  - ARTERIOSCLEROSIS CORONARY ARTERY [None]
  - ARTHROPATHY [None]
  - HYPERLIPIDAEMIA [None]
  - INFECTIVE TENOSYNOVITIS [None]
  - ISCHAEMIC CARDIOMYOPATHY [None]
  - LIMB INJURY [None]
  - MYOCARDIAL INFARCTION [None]
  - PARKINSON'S DISEASE [None]
